FAERS Safety Report 16543918 (Version 1)
Quarter: 2019Q3

REPORT INFORMATION
  Report Type: Report from Study
  Country: FR (occurrence: FR)
  Receive Date: 20190709
  Receipt Date: 20190709
  Transmission Date: 20191004
  Serious: Yes (Other)
  Sender: FDA-Public Use
  Company Number: FR-TEVA-2019-FR-1075163

PATIENT
  Age: 26 Year
  Sex: Female

DRUGS (2)
  1. LEVETIRACETAM. [Suspect]
     Active Substance: LEVETIRACETAM
     Indication: EPILEPSY
     Dosage: 750 MG/DAY
     Route: 065
  2. LUTENYL [Suspect]
     Active Substance: NOMEGESTROL ACETATE
     Indication: PRODUCT USED FOR UNKNOWN INDICATION
     Route: 065

REACTIONS (4)
  - Maternal exposure during pregnancy [Unknown]
  - Focal dyscognitive seizures [Unknown]
  - Live birth [Unknown]
  - Maternal exposure during breast feeding [Unknown]
